FAERS Safety Report 11397792 (Version 5)
Quarter: 2015Q4

REPORT INFORMATION
  Report Type: Spontaneous
  Country: IE (occurrence: IE)
  Receive Date: 20150819
  Receipt Date: 20151125
  Transmission Date: 20160304
  Serious: Yes (Death, Hospitalization, Other)
  Sender: FDA-Public Use
  Company Number: IE-ALEXION-A201503061

PATIENT
  Sex: Female

DRUGS (1)
  1. SOLIRIS [Suspect]
     Active Substance: ECULIZUMAB
     Indication: HAEMOLYTIC URAEMIC SYNDROME
     Dosage: 900 MG, UNK
     Route: 042

REACTIONS (6)
  - Natural killer cell count decreased [Unknown]
  - Systemic candida [Unknown]
  - Death [Fatal]
  - B-lymphocyte count decreased [Unknown]
  - Cerebral aspergillosis [Unknown]
  - Aspergillus infection [Unknown]
